FAERS Safety Report 23193266 (Version 3)
Quarter: 2024Q1

REPORT INFORMATION
  Report Type: Report from Study
  Country: IT (occurrence: IT)
  Receive Date: 20231116
  Receipt Date: 20240131
  Transmission Date: 20240410
  Serious: Yes (Death)
  Sender: FDA-Public Use
  Company Number: IT-ROCHE-3320282

PATIENT
  Age: 52 Year
  Sex: Female
  Weight: 64 kg

DRUGS (26)
  1. ENHERTU [Suspect]
     Active Substance: FAM-TRASTUZUMAB DERUXTECAN-NXKI
     Indication: HER2 positive breast cancer
     Dosage: 5.4 MG/KG, CYCLIC (MOST RECENT DOSE RECEIVED ON: 15/NOV/2022)
     Route: 042
     Dates: start: 20220722, end: 20221021
  2. ENHERTU [Suspect]
     Active Substance: FAM-TRASTUZUMAB DERUXTECAN-NXKI
     Dosage: 5 MG/KG, CYCLIC
     Route: 042
     Dates: start: 20221115, end: 20230207
  3. PERTUZUMAB [Suspect]
     Active Substance: PERTUZUMAB
     Indication: HER2 positive breast cancer
     Dosage: 840 MG, ONCE EVERY 3 WK
     Route: 042
     Dates: start: 20170811, end: 20170811
  4. PERTUZUMAB [Suspect]
     Active Substance: PERTUZUMAB
     Dosage: 840 MG, ONCE EVERY 3 WK
     Route: 042
     Dates: start: 20170904, end: 20170927
  5. PERTUZUMAB [Suspect]
     Active Substance: PERTUZUMAB
     Dosage: 420 MG, ONCE EVERY 3 WK
     Route: 042
     Dates: start: 20171026, end: 20220628
  6. NOLVADEX [Suspect]
     Active Substance: TAMOXIFEN CITRATE
     Indication: HER2 positive breast cancer
     Dosage: 20 MG, QD (MOST RECENT DOSE PRIOR TO AE 21-JUL-2022)
     Route: 048
     Dates: start: 20180308, end: 20220721
  7. HERCEPTIN [Suspect]
     Active Substance: TRASTUZUMAB
     Indication: HER2 positive breast cancer
     Dosage: 500 MG, ONCE EVERY 3 WK
     Route: 042
     Dates: start: 20170811, end: 20170811
  8. HERCEPTIN [Suspect]
     Active Substance: TRASTUZUMAB
     Dosage: 500 MG, ONCE EVERY 3 WK
     Route: 042
     Dates: start: 20170904, end: 20170927
  9. HERCEPTIN [Suspect]
     Active Substance: TRASTUZUMAB
     Dosage: 380 MG, ONCE EVERY 3 WK
     Route: 042
     Dates: start: 20171026, end: 20180913
  10. HERCEPTIN [Suspect]
     Active Substance: TRASTUZUMAB
     Dosage: 414 MG, ONCE EVERY 3 WK
     Route: 042
     Dates: start: 20181004, end: 20181004
  11. HERCEPTIN [Suspect]
     Active Substance: TRASTUZUMAB
     Dosage: 400 MG, ONCE EVERY 3 WK
     Route: 042
     Dates: start: 20181025, end: 20220628
  12. TAXOL [Suspect]
     Active Substance: PACLITAXEL
     Indication: HER2 positive breast cancer
     Dosage: 130 MG, ONCE EVERY 1 WK (MOST RECENT DOSE OF PACLITAXEL: 22-NOV-2017)
     Route: 042
     Dates: start: 20170811, end: 20171012
  13. TAXOL [Suspect]
     Active Substance: PACLITAXEL
     Dosage: 100 MG, ONCE EVERY 1 WK
     Route: 042
     Dates: start: 20171102, end: 20171109
  14. TAXOL [Suspect]
     Active Substance: PACLITAXEL
     Dosage: 90 MG, ONCE EVERY 1 WK
     Route: 042
     Dates: start: 20171122, end: 20180209
  15. TRIPTORELIN [Suspect]
     Active Substance: TRIPTORELIN
     Indication: HER2 positive breast cancer
     Dosage: 3.75 MG, ONCE EVERY 4 WK
     Route: 048
     Dates: start: 20170804, end: 20220721
  16. FLUCONAZOLE [Concomitant]
     Active Substance: FLUCONAZOLE
     Indication: Product used for unknown indication
     Dosage: UNK
     Route: 065
     Dates: start: 20230225, end: 20230312
  17. MORPHINE [Concomitant]
     Active Substance: MORPHINE
     Indication: Product used for unknown indication
     Dosage: UNK
     Route: 065
     Dates: start: 20230207, end: 20230212
  18. ONDANSETRON [Concomitant]
     Active Substance: ONDANSETRON
     Indication: Product used for unknown indication
     Dosage: UNK
     Route: 065
     Dates: start: 20220722, end: 20230207
  19. LINEZOLID [Concomitant]
     Active Substance: LINEZOLID
     Indication: Product used for unknown indication
     Dosage: UNK
     Route: 065
     Dates: start: 20230225, end: 20230312
  20. MEROPENEM [Concomitant]
     Active Substance: MEROPENEM
     Indication: Product used for unknown indication
     Dosage: UNK
     Route: 065
     Dates: start: 20230225, end: 20230312
  21. INFLIXIMAB [Concomitant]
     Active Substance: INFLIXIMAB
     Indication: Dyspnoea
     Dosage: UNK
     Route: 065
     Dates: start: 20230302, end: 20230302
  22. METHYLPREDNISOLONE [Concomitant]
     Active Substance: METHYLPREDNISOLONE
     Indication: Dyspnoea
     Dosage: UNK
     Route: 065
     Dates: start: 20230207, end: 20230312
  23. DEXAMETHASONE [Concomitant]
     Active Substance: DEXAMETHASONE
     Indication: Product used for unknown indication
     Dosage: UNK
     Route: 065
     Dates: start: 20220722, end: 20230207
  24. MIDAZOLAM [Concomitant]
     Active Substance: MIDAZOLAM
     Indication: Product used for unknown indication
     Dosage: UNK
     Route: 065
  25. CHLORPHENIRAMINE MALEATE [Concomitant]
     Active Substance: CHLORPHENIRAMINE MALEATE
     Indication: Product used for unknown indication
     Dosage: UNK
     Route: 065
  26. RANITIDINE [Concomitant]
     Active Substance: RANITIDINE
     Indication: Product used for unknown indication
     Dosage: UNK
     Route: 065

REACTIONS (3)
  - Dyspnoea [Fatal]
  - Incorrect dose administered [Recovered/Resolved]
  - Intentional product use issue [Recovered/Resolved]

NARRATIVE: CASE EVENT DATE: 20221115
